FAERS Safety Report 7077359-2 (Version None)
Quarter: 2010Q4

REPORT INFORMATION
  Report Type: 
  Country: None (occurrence: None)
  Receive Date: 20101101
  Receipt Date: 20101018
  Transmission Date: 20110411
  Serious: Yes (Hospitalization)
  Sender: FDA-Public Use
  Company Number: GR-CUBIST-2010S1001516

PATIENT
  Age: 80 Year
  Sex: Female

DRUGS (1)
  1. CUBICIN [Suspect]
     Indication: SOFT TISSUE INFECTION
     Route: 042
     Dates: start: 20100517, end: 20100518

REACTIONS (1)
  - HAEMATURIA [None]
